FAERS Safety Report 9016023 (Version 1)
Quarter: 2013Q1

REPORT INFORMATION
  Report Type: Report from Study
  Country: US (occurrence: US)
  Receive Date: 20130116
  Receipt Date: 20130116
  Transmission Date: 20140127
  Serious: Yes (Hospitalization)
  Sender: FDA-Public Use
  Company Number: US-ABBOTT-13P-163-1034444-00

PATIENT
  Age: 72 Year
  Sex: Female
  Weight: 58.11 kg

DRUGS (15)
  1. HUMIRA [Suspect]
     Indication: RHEUMATOID ARTHRITIS
     Route: 058
     Dates: start: 201208, end: 201211
  2. ASPIRIN [Concomitant]
     Indication: ANTICOAGULANT THERAPY
  3. CALCIUM + VITAMIN D [Concomitant]
     Indication: PRODUCT USED FOR UNKNOWN INDICATION
  4. CELEXA [Concomitant]
     Indication: FIBROMYALGIA
  5. FIORICET [Concomitant]
     Indication: MIGRAINE
  6. FOLIC ACID [Concomitant]
     Indication: PRODUCT USED FOR UNKNOWN INDICATION
  7. HYDROCHLOROTHIAZIDE [Concomitant]
     Indication: PRODUCT USED FOR UNKNOWN INDICATION
  8. HYOSCYAMINE [Concomitant]
     Indication: IRRITABLE BOWEL SYNDROME
  9. LISINOPRIL [Concomitant]
     Indication: HYPERTENSION
  10. PREDNISONE [Concomitant]
     Indication: RHEUMATOID ARTHRITIS
  11. PRILOSEC [Concomitant]
     Indication: GASTROOESOPHAGEAL REFLUX DISEASE
  12. TIGAN [Concomitant]
     Indication: IRRITABLE BOWEL SYNDROME
  13. VITAMIN B 12 [Concomitant]
     Indication: PRODUCT USED FOR UNKNOWN INDICATION
  14. VITAMIN C [Concomitant]
     Indication: PRODUCT USED FOR UNKNOWN INDICATION
  15. ZOCOR [Concomitant]
     Indication: BLOOD CHOLESTEROL INCREASED

REACTIONS (6)
  - Colitis ischaemic [Recovering/Resolving]
  - Diverticulitis [Not Recovered/Not Resolved]
  - Loss of consciousness [Recovered/Resolved]
  - Rectal haemorrhage [Recovered/Resolved]
  - Gastrointestinal infection [Recovered/Resolved]
  - Haemoglobin decreased [Recovering/Resolving]
